FAERS Safety Report 16729007 (Version 2)
Quarter: 2019Q4

REPORT INFORMATION
  Report Type: Spontaneous
  Country: US (occurrence: US)
  Receive Date: 20190822
  Receipt Date: 20191024
  Transmission Date: 20200122
  Serious: Yes (Other)
  Sender: FDA-Public Use
  Company Number: US-PFIZER INC-2019356277

PATIENT
  Age: 58 Year
  Sex: Female
  Weight: 81.65 kg

DRUGS (3)
  1. ALMOTRIPTAN MALATE. [Concomitant]
     Active Substance: ALMOTRIPTAN MALATE
     Dosage: UNK
     Dates: start: 201908
  2. RELPAX [Suspect]
     Active Substance: ELETRIPTAN HYDROBROMIDE
     Indication: MIGRAINE
     Dosage: 40 MG, AS NEEDED
     Route: 048
     Dates: start: 20140912, end: 20190815
  3. ELETRIPTAN HBR [Concomitant]
     Active Substance: ELETRIPTAN HYDROBROMIDE
     Dosage: UNK
     Dates: start: 20190311

REACTIONS (3)
  - Malaise [Unknown]
  - Gastrointestinal disorder [Not Recovered/Not Resolved]
  - Recalled product administered [Unknown]

NARRATIVE: CASE EVENT DATE: 2018
